FAERS Safety Report 25829690 (Version 3)
Quarter: 2025Q4

REPORT INFORMATION
  Report Type: Spontaneous
  Country: US (occurrence: US)
  Receive Date: 20250922
  Receipt Date: 20251221
  Transmission Date: 20260117
  Serious: Yes (Death, Life-Threatening, Hospitalization, Disabling)
  Sender: JOHNSON AND JOHNSON
  Company Number: US-JNJFOC-20250926943

PATIENT
  Age: 60 Year
  Sex: Male

DRUGS (1)
  1. CARVYKTI [Suspect]
     Active Substance: CILTACABTAGENE AUTOLEUCEL
     Indication: Product used for unknown indication

REACTIONS (3)
  - Sepsis [Fatal]
  - Guillain-Barre syndrome [Not Recovered/Not Resolved]
  - Respiratory failure [Not Recovered/Not Resolved]
